FAERS Safety Report 15818622 (Version 1)
Quarter: 2019Q1

REPORT INFORMATION
  Report Type: Spontaneous
  Country: FR (occurrence: FR)
  Receive Date: 20190113
  Receipt Date: 20190113
  Transmission Date: 20190417
  Serious: Yes (Other)
  Sender: FDA-Public Use
  Company Number: FR-ASTRAZENECA-2019SE04801

PATIENT
  Age: 0 Month
  Sex: Female

DRUGS (2)
  1. INEXIUM [Suspect]
     Active Substance: ESOMEPRAZOLE
     Indication: OESOPHAGEAL ATRESIA
     Route: 048
     Dates: start: 20180703
  2. INEXIUM [Suspect]
     Active Substance: ESOMEPRAZOLE
     Indication: OESOPHAGEAL ATRESIA
     Route: 048

REACTIONS (2)
  - Product use issue [Unknown]
  - Lung disorder [Unknown]

NARRATIVE: CASE EVENT DATE: 201807
